FAERS Safety Report 5719797-3 (Version None)
Quarter: 2008Q2

REPORT INFORMATION
  Report Type: 
  Country: None (occurrence: None)
  Receive Date: 20080425
  Receipt Date: 20080425
  Transmission Date: 20081010
  Serious: Yes (Disabling)
  Sender: FDA-Public Use
  Company Number: None

PATIENT
  Age: 55 Year
  Sex: Female
  Weight: 62.1428 kg

DRUGS (2)
  1. BONIVA [Suspect]
     Indication: OSTEOPENIA
     Dosage: 1 PILL 1 TIME MONTHLY PO
     Route: 048
     Dates: start: 20080126, end: 20080226
  2. BONIVA [Suspect]
     Indication: OSTEOPENIA
     Dosage: 1 PILL 1 TIME MONTHLY PO
     Route: 048
     Dates: start: 20080226, end: 20080326

REACTIONS (7)
  - BURSITIS [None]
  - DRUG INEFFECTIVE [None]
  - ECONOMIC PROBLEM [None]
  - MUSCULOSKELETAL PAIN [None]
  - NECK PAIN [None]
  - PAIN IN EXTREMITY [None]
  - TENDONITIS [None]
